FAERS Safety Report 6809099 (Version 4)
Quarter: 2012Q4

REPORT INFORMATION
  Report Type: 
  Country: CA (occurrence: CA)
  Receive Date: 20081112
  Receipt Date: 20121111
  Transmission Date: 20130627
  Serious: Yes (Death, Other)
  Sender: FDA-Public Use
  Company Number: PHHY2008CA26880

PATIENT
  Sex: Male

DRUGS (2)
  1. SANDOSTATIN LAR [Suspect]
     Indication: INTESTINAL OBSTRUCTION
     Dosage: 30 mg, every 4 weeks
     Route: 030
     Dates: start: 20081003, end: 20081030
  2. SANDOSTATIN LAR [Suspect]
     Indication: BILE DUCT CANCER

REACTIONS (7)
  - Death [Fatal]
  - Portal vein thrombosis [Recovered/Resolved]
  - Oesophageal varices haemorrhage [Unknown]
  - Haematemesis [Unknown]
  - Gastrointestinal haemorrhage [Recovered/Resolved]
  - Melaena [Unknown]
  - Vomiting [Recovered/Resolved]
